FAERS Safety Report 16080233 (Version 1)
Quarter: 2019Q1

REPORT INFORMATION
  Report Type: Spontaneous
  Country: US (occurrence: US)
  Receive Date: 20190315
  Receipt Date: 20190315
  Transmission Date: 20190418
  Serious: No
  Sender: FDA-Public Use
  Company Number: PHEH2019US011074

PATIENT
  Age: 79 Year
  Sex: Female
  Weight: 79.38 kg

DRUGS (2)
  1. IBRANCE [Suspect]
     Active Substance: PALBOCICLIB
     Indication: BREAST CANCER
     Dosage: 125 MG, QD (EVERY NIGHT)
     Route: 048
     Dates: start: 201710
  2. LETROZOLE. [Suspect]
     Active Substance: LETROZOLE
     Indication: BREAST CANCER
     Dosage: 5 MG, QD (ONE AT NIGHT)
     Route: 065

REACTIONS (5)
  - Fatigue [Recovering/Resolving]
  - Tendonitis [Unknown]
  - Gait disturbance [Unknown]
  - Dyspnoea [Recovering/Resolving]
  - Increased appetite [Unknown]

NARRATIVE: CASE EVENT DATE: 201711
